FAERS Safety Report 11786851 (Version 1)
Quarter: 2015Q4

REPORT INFORMATION
  Report Type: Spontaneous
  Country: US (occurrence: US)
  Receive Date: 20151130
  Receipt Date: 20151130
  Transmission Date: 20160305
  Serious: Yes (Other)
  Sender: FDA-Public Use
  Company Number: US-SA-2015SA174290

PATIENT
  Age: 49 Year
  Sex: Female

DRUGS (4)
  1. METFORMIN [Concomitant]
     Active Substance: METFORMIN HYDROCHLORIDE
  2. SOLOSTAR [Suspect]
     Active Substance: DEVICE
     Indication: DIABETES MELLITUS
     Dates: start: 2013
  3. LANTUS SOLOSTAR [Suspect]
     Active Substance: INSULIN GLARGINE
     Indication: DIABETES MELLITUS
     Dosage: DOSE: 80 UNITS BUT SHE IS WORKING HER WAY UP TO 90 UNITS
     Route: 065
     Dates: start: 2013
  4. VERAPAMIL [Concomitant]
     Active Substance: VERAPAMIL HYDROCHLORIDE

REACTIONS (8)
  - Blood glucose increased [Recovered/Resolved]
  - Neuropathy peripheral [Unknown]
  - Decreased appetite [Unknown]
  - Feeling abnormal [Unknown]
  - Wrong technique in product usage process [Unknown]
  - Liver injury [Unknown]
  - Blood glucose abnormal [Unknown]
  - Insomnia [Unknown]
